FAERS Safety Report 9769634 (Version 7)
Quarter: 2015Q2

REPORT INFORMATION
  Report Type: Report from Study
  Country: AU (occurrence: AU)
  Receive Date: 20131218
  Receipt Date: 20150622
  Transmission Date: 20150821
  Serious: Yes (Hospitalization)
  Sender: FDA-Public Use
  Company Number: AU-ROCHE-1253651

PATIENT
  Age: 42 Year
  Sex: Female
  Weight: 143.5 kg

DRUGS (27)
  1. VOLTAREN [Concomitant]
     Active Substance: DICLOFENAC SODIUM
     Indication: PAIN
     Route: 048
     Dates: start: 201306, end: 201404
  2. FRUSEMIDE [Concomitant]
     Active Substance: FUROSEMIDE
     Indication: CELLULITIS
  3. DICLOXACILLIN [Concomitant]
     Active Substance: DICLOXACILLIN
     Indication: OEDEMA PERIPHERAL
     Route: 048
     Dates: start: 20141016, end: 20141022
  4. DICLOXACILLIN [Concomitant]
     Active Substance: DICLOXACILLIN
     Indication: CELLULITIS
  5. PARACETAMOL [Concomitant]
     Active Substance: ACETAMINOPHEN
     Indication: LARYNGITIS
     Route: 048
     Dates: start: 20140802
  6. CLEXANE [Concomitant]
     Active Substance: ENOXAPARIN SODIUM
     Indication: CELLULITIS
  7. OXYCODONE [Concomitant]
     Active Substance: OXYCODONE
     Indication: OEDEMA PERIPHERAL
     Route: 048
     Dates: start: 20141010, end: 20141010
  8. VEMURAFENIB [Suspect]
     Active Substance: VEMURAFENIB
     Indication: METASTATIC MALIGNANT MELANOMA
     Route: 048
     Dates: start: 20130704, end: 20130724
  9. DIAZEPAM. [Concomitant]
     Active Substance: DIAZEPAM
     Indication: ANXIETY
     Route: 048
     Dates: start: 2011, end: 201404
  10. PANADOL (AUSTRALIA) [Concomitant]
     Indication: PAIN
     Route: 048
     Dates: start: 2003
  11. ENOXAPARIN [Concomitant]
     Active Substance: ENOXAPARIN
     Indication: PROPHYLAXIS
     Route: 058
     Dates: start: 20130724, end: 20130724
  12. FRUSEMIDE [Concomitant]
     Active Substance: FUROSEMIDE
     Indication: OEDEMA PERIPHERAL
     Route: 042
     Dates: start: 20141011, end: 20141011
  13. GASTRO-STOP [Concomitant]
     Active Substance: LOPERAMIDE
     Indication: DIARRHOEA
     Route: 048
     Dates: start: 20131219, end: 201408
  14. COBIMETINIB [Suspect]
     Active Substance: COBIMETINIB
     Indication: METASTATIC MALIGNANT MELANOMA
     Route: 048
     Dates: start: 20130705, end: 20130724
  15. COBIMETINIB [Suspect]
     Active Substance: COBIMETINIB
     Dosage: BLINDED DOSE
     Route: 048
     Dates: start: 20130823
  16. PANADOL [Concomitant]
     Active Substance: ACETAMINOPHEN
     Indication: ARTHRALGIA
     Route: 048
     Dates: start: 20131205
  17. NEUROFEN [Concomitant]
     Active Substance: IBUPROFEN
     Indication: ARTHRALGIA
     Route: 048
     Dates: start: 20130905, end: 201401
  18. VEMURAFENIB [Suspect]
     Active Substance: VEMURAFENIB
     Route: 048
     Dates: start: 20130823
  19. CELEBREX [Concomitant]
     Active Substance: CELECOXIB
     Indication: PAIN
     Route: 048
     Dates: start: 20140201, end: 201408
  20. MECLIZINE HYDROCHLORIDE. [Concomitant]
     Active Substance: MECLIZINE HYDROCHLORIDE
     Indication: MOTION SICKNESS
     Route: 048
     Dates: start: 20140410, end: 20140417
  21. OXYCODONE [Concomitant]
     Active Substance: OXYCODONE
     Indication: CELLULITIS
  22. FLUCLOXACILLIN [Concomitant]
     Active Substance: FLUCLOXACILLIN
     Indication: OEDEMA PERIPHERAL
     Route: 042
     Dates: start: 20141011, end: 20141016
  23. KWELLS [Concomitant]
     Active Substance: SCOPOLAMINE HYDROBROMIDE
     Indication: MOTION SICKNESS
     Route: 048
     Dates: start: 20140408, end: 20140409
  24. PHOLCODINE [Concomitant]
     Active Substance: PHOLCODINE
     Indication: COUGH
     Route: 048
     Dates: start: 20140911
  25. CLEXANE [Concomitant]
     Active Substance: ENOXAPARIN SODIUM
     Indication: OEDEMA PERIPHERAL
     Route: 058
     Dates: start: 20141011, end: 20141017
  26. FLUCLOXACILLIN [Concomitant]
     Active Substance: FLUCLOXACILLIN
     Indication: CELLULITIS
  27. NEXIUM [Concomitant]
     Active Substance: ESOMEPRAZOLE MAGNESIUM
     Indication: GASTROOESOPHAGEAL REFLUX DISEASE
     Route: 048
     Dates: start: 2005

REACTIONS (1)
  - Panniculitis [Recovering/Resolving]

NARRATIVE: CASE EVENT DATE: 20130724
